FAERS Safety Report 11316558 (Version 2)
Quarter: 2018Q3

REPORT INFORMATION
  Report Type: Spontaneous
  Country: FR (occurrence: FR)
  Receive Date: 20150728
  Receipt Date: 20180910
  Transmission Date: 20181010
  Serious: Yes (Hospitalization)
  Sender: FDA-Public Use
  Company Number: FR-ASTRAZENECA-2015SE72072

PATIENT
  Age: 4301 Day
  Sex: Male

DRUGS (11)
  1. INEXIUM [Suspect]
     Active Substance: ESOMEPRAZOLE
     Route: 048
     Dates: start: 2006
  2. COUMADINE [Suspect]
     Active Substance: WARFARIN SODIUM
     Route: 048
     Dates: start: 200601
  3. RIVOTRIL [Suspect]
     Active Substance: CLONAZEPAM
     Route: 048
     Dates: start: 201405
  4. CATAPRESSAN [Suspect]
     Active Substance: CLONIDINE
     Route: 048
     Dates: start: 201408
  5. AUGMENTIN [Suspect]
     Active Substance: AMOXICILLIN\CLAVULANATE POTASSIUM
     Route: 042
     Dates: start: 20150619, end: 20150702
  6. SECTRAL [Suspect]
     Active Substance: ACEBUTOLOL HYDROCHLORIDE
     Route: 048
     Dates: start: 2013
  7. LAROXYL [Suspect]
     Active Substance: AMITRIPTYLINE HYDROCHLORIDE
     Route: 048
     Dates: start: 201407
  8. KEPPRA [Suspect]
     Active Substance: LEVETIRACETAM
     Route: 048
     Dates: start: 201405
  9. FORLAX [Concomitant]
     Active Substance: POLYETHYLENE GLYCOL 4000
     Dates: start: 2014
  10. BACLOFEN. [Suspect]
     Active Substance: BACLOFEN
     Route: 048
     Dates: start: 201405
  11. ATARAX [Suspect]
     Active Substance: HYDROXYZINE HYDROCHLORIDE
     Route: 048
     Dates: start: 2014

REACTIONS (3)
  - Epistaxis [Unknown]
  - Thrombocytopenia [Recovered/Resolved]
  - Haematemesis [Unknown]

NARRATIVE: CASE EVENT DATE: 20150619
